FAERS Safety Report 7994242-6 (Version None)
Quarter: 2011Q4

REPORT INFORMATION
  Report Type: 
  Country: None (occurrence: None)
  Receive Date: 20111220
  Receipt Date: 20111208
  Transmission Date: 20120403
  Serious: Yes (Hospitalization)
  Sender: FDA-Public Use
  Company Number: US-JNJFOC-20111204472

PATIENT
  Sex: Female
  Weight: 68.04 kg

DRUGS (4)
  1. REMICADE [Suspect]
     Indication: CROHN'S DISEASE
     Dosage: ^EVERY OTHER MONTH^
     Route: 042
     Dates: start: 20110201, end: 20110101
  2. REMICADE [Suspect]
     Route: 042
     Dates: start: 20110101
  3. REMICADE [Suspect]
     Indication: COLITIS ULCERATIVE
     Route: 042
     Dates: start: 20110101
  4. REMICADE [Suspect]
     Dosage: ^EVERY OTHER MONTH^
     Route: 042
     Dates: start: 20110201, end: 20110101

REACTIONS (11)
  - COUGH [None]
  - DYSPNOEA [None]
  - ASTHMA [None]
  - VITAMIN D DEFICIENCY [None]
  - ARTHRALGIA [None]
  - UPPER RESPIRATORY TRACT INFECTION [None]
  - ALOPECIA [None]
  - PERTUSSIS [None]
  - INSOMNIA [None]
  - GASTROOESOPHAGEAL REFLUX DISEASE [None]
  - PSORIASIS [None]
